FAERS Safety Report 21740595 (Version 1)
Quarter: 2022Q4

REPORT INFORMATION
  Report Type: Spontaneous
  Country: GB (occurrence: GB)
  Receive Date: 20221216
  Receipt Date: 20221216
  Transmission Date: 20230113
  Serious: Yes (Hospitalization, Other)
  Sender: FDA-Public Use
  Company Number: None

PATIENT
  Age: 58 Year
  Sex: Female
  Weight: 76.64 kg

DRUGS (34)
  1. LISINOPRIL [Suspect]
     Active Substance: LISINOPRIL
     Indication: Product used for unknown indication
     Dosage: 1 DOSAGE FORMS DAILY; 1 TABLET ONCE A DAY, DURATION: 7 DAYS, STRENGTH: 5MG
     Route: 065
     Dates: start: 20221027, end: 20221103
  2. ATORVASTATIN [Concomitant]
     Active Substance: ATORVASTATIN
     Indication: Product used for unknown indication
     Dosage: 1 DOSAGE FORMS DAILY; 1 TABLET ONCE A DAY, STRENGTH: 40MG, DURATION: 11 DAYS
     Dates: start: 20220811, end: 20220822
  3. ATORVASTATIN [Concomitant]
     Active Substance: ATORVASTATIN
     Dosage: 1 DOSAGE FORMS DAILY; 1 TABLET ONCE A DAY, STRENGTH: 40MG
     Dates: start: 20220822
  4. ATORVASTATIN [Concomitant]
     Active Substance: ATORVASTATIN
     Dosage: 1 DOSAGE FORMS DAILY; 1 TABLET ONCE A DAY, STRENGTH: 40MG
     Dates: start: 20220811
  5. ATORVASTATIN [Concomitant]
     Active Substance: ATORVASTATIN
     Dosage: 1 DOSAGE FORMS DAILY; 1 TABLET ONCE A DAY, STRENGTH: 40MG
     Dates: start: 20221027
  6. ATORVASTATIN [Concomitant]
     Active Substance: ATORVASTATIN
     Dosage: 1 DOSAGE FORMS DAILY; 1 TABLET ONCE A DAY, STRENGTH: 40MG, DURATION: 34 DAYS
     Dates: start: 20220923, end: 20221027
  7. ATORVASTATIN [Concomitant]
     Active Substance: ATORVASTATIN
     Dosage: 1 DOSAGE FORMS DAILY; 1 TABLET ONCE A DAY, STRENGTH: 40MG
     Dates: start: 20221103
  8. ATORVASTATIN [Concomitant]
     Active Substance: ATORVASTATIN
     Dosage: 1 DOSAGE FORMS DAILY; 1 TABLET ONCE A DAY, STRENGTH: 40MG
     Dates: start: 20220902
  9. ATORVASTATIN [Concomitant]
     Active Substance: ATORVASTATIN
     Dosage: 1 DOSAGE FORMS DAILY; 1 TABLET ONCE A DAY, STRENGTH: 40MG, DURATION: 21 DAYS
     Dates: start: 20220902, end: 20220923
  10. ATORVASTATIN [Concomitant]
     Active Substance: ATORVASTATIN
     Dosage: 1 DOSAGE FORMS DAILY; 1 TABLET ONCE A DAY, STRENGTH: 40MG
     Dates: start: 20220923
  11. ATORVASTATIN [Concomitant]
     Active Substance: ATORVASTATIN
     Dosage: 1 DOSAGE FORMS DAILY; 1 TABLET ONCE A DAY, STRENGTH: 40MG, DURATION: 7 DAYS
     Dates: start: 20221027, end: 20221103
  12. ATORVASTATIN [Concomitant]
     Active Substance: ATORVASTATIN
     Dosage: 1 DOSAGE FORMS DAILY; 1 TABLET ONCE A DAY, STRENGTH: 40MG, DURATION: 11 DAYS
     Dates: start: 20220822, end: 20220902
  13. INDAPAMIDE [Concomitant]
     Active Substance: INDAPAMIDE
     Indication: Product used for unknown indication
     Dosage: 1 DOSAGE FORMS DAILY; 1 TABLET ONCE A DAY, STRENGTH: 2.5 MG
     Dates: start: 20220822
  14. LISINOPRIL [Concomitant]
     Active Substance: LISINOPRIL
     Indication: Product used for unknown indication
     Dosage: 1 DOSAGE FORMS DAILY; 1 TABLET ONCE A DAY, STRENGTH: 10MG
     Dates: start: 20221027
  15. LISINOPRIL [Concomitant]
     Active Substance: LISINOPRIL
     Dosage: 1 DOSAGE FORMS DAILY; 1 TABLET ONCE A DAY, STRENGTH: 10MG
     Dates: start: 20220923
  16. LISINOPRIL [Concomitant]
     Active Substance: LISINOPRIL
     Dosage: 1 DOSAGE FORMS DAILY; 1 TABLET ONCE A DAY, STRENGTH: 5MG
     Dates: start: 20220822
  17. LISINOPRIL [Concomitant]
     Active Substance: LISINOPRIL
     Dosage: 1 DOSAGE FORMS DAILY; 1 TABLET ONCE A DAY, STRENGTH: 5MG
     Dates: start: 20221103
  18. LISINOPRIL [Concomitant]
     Active Substance: LISINOPRIL
     Dosage: 1 DOSAGE FORMS DAILY; 1 TABLET ONCE A DAY, STRENGTH: 10MG
     Dates: start: 20220902
  19. LISINOPRIL [Concomitant]
     Active Substance: LISINOPRIL
     Dosage: 1 DOSAGE FORMS DAILY; 1 TABLET ONCE A DAY, STRENGTH: 10MG
     Dates: start: 20220902
  20. LISINOPRIL [Concomitant]
     Active Substance: LISINOPRIL
     Dosage: 1 DOSAGE FORMS DAILY; 1 TABLET ONCE A DAY, STRENGTH: 5MG, DURATION: 21 DAYS
     Dates: start: 20220902, end: 20220923
  21. LISINOPRIL [Concomitant]
     Active Substance: LISINOPRIL
     Dosage: 1 DOSAGE FORMS DAILY; 1 TABLET ONCE A DAY, STRENGTH: 10MG, DURATION: 34 DAYS
     Dates: start: 20220923, end: 20221027
  22. LISINOPRIL [Concomitant]
     Active Substance: LISINOPRIL
     Dosage: 1 DOSAGE FORMS DAILY; 1 TABLET ONCE A DAY, STRENGTH: 5MG, DURATION: 11 DAYS
     Dates: start: 20220811, end: 20220822
  23. LISINOPRIL [Concomitant]
     Active Substance: LISINOPRIL
     Dosage: 1 DOSAGE FORMS DAILY; 1 TABLET ONCE A DAY, STRENGTH: 10MG, DURATION: 11 DAYS
     Dates: start: 20220811, end: 20220822
  24. LISINOPRIL [Concomitant]
     Active Substance: LISINOPRIL
     Dosage: 1 DOSAGE FORMS DAILY; 1 TABLET ONCE A DAY, STRENGTH: 5MG
     Dates: start: 20220822
  25. LISINOPRIL [Concomitant]
     Active Substance: LISINOPRIL
     Dosage: 1 DOSAGE FORMS DAILY; 1 TABLET ONCE A DAY, STRENGTH: 5MG, DURATION: 11 DAYS
     Dates: start: 20220822, end: 20220902
  26. LISINOPRIL [Concomitant]
     Active Substance: LISINOPRIL
     Dosage: 1 DOSAGE FORMS DAILY; 1 TABLET ONCE A DAY, STRENGTH: 10MG
     Dates: start: 20221027
  27. LISINOPRIL [Concomitant]
     Active Substance: LISINOPRIL
     Dosage: 1 DOSAGE FORMS DAILY; 1 TABLET ONCE A DAY, STRENGTH: 10MG
     Dates: start: 20220811
  28. LISINOPRIL [Concomitant]
     Active Substance: LISINOPRIL
     Dosage: 1 DOSAGE FORMS DAILY; 1 TABLET ONCE A DAY, STRENGTH: 5MG
     Dates: start: 20220811
  29. LISINOPRIL [Concomitant]
     Active Substance: LISINOPRIL
     Dosage: 1 DOSAGE FORMS DAILY; 1 TABLET ONCE A DAY, STRENGTH: 5MG
     Dates: start: 20221103
  30. LISINOPRIL [Concomitant]
     Active Substance: LISINOPRIL
     Dosage: 1 DOSAGE FORMS DAILY; 1 TABLET ONCE A DAY, STRENGTH: 10MG, DURATION: 11 DAYS
     Dates: start: 20220822, end: 20220902
  31. LISINOPRIL [Concomitant]
     Active Substance: LISINOPRIL
     Dosage: 1 DOSAGE FORMS DAILY; 1 TABLET ONCE A DAY, STRENGTH: 10MG, DURATION: 7 DAYS
     Dates: start: 20221027, end: 20221103
  32. LISINOPRIL [Concomitant]
     Active Substance: LISINOPRIL
     Dosage: 1 DOSAGE FORMS DAILY; 1 TABLET ONCE A DAY, STRENGTH: 5MG, DURATION: 34 DAYS
     Dates: start: 20220923, end: 20221027
  33. LISINOPRIL [Concomitant]
     Active Substance: LISINOPRIL
     Dosage: 1 DOSAGE FORMS DAILY; 1 TABLET ONCE A DAY, STRENGTH: 5MG
     Dates: start: 20220923
  34. LISINOPRIL [Concomitant]
     Active Substance: LISINOPRIL
     Dosage: 1 DOSAGE FORMS DAILY; 1 TABLET ONCE A DAY, STRENGTH: 10MG, DURATION: 21 DAYS
     Dates: start: 20220902, end: 20220923

REACTIONS (1)
  - Hypomagnesaemia [Recovered/Resolved]
